FAERS Safety Report 14387770 (Version 1)
Quarter: 2018Q1

REPORT INFORMATION
  Report Type: Spontaneous
  Country: US (occurrence: US)
  Receive Date: 20180115
  Receipt Date: 20180115
  Transmission Date: 20180509
  Serious: Yes (Other)
  Sender: FDA-Public Use
  Company Number: US-SA-2017SA189573

PATIENT
  Age: 66 Year
  Sex: Female
  Weight: 104.3 kg

DRUGS (5)
  1. TAXOTERE [Suspect]
     Active Substance: DOCETAXEL
     Indication: ENDOMETRIAL ADENOCARCINOMA
     Route: 051
     Dates: start: 20131107, end: 20131107
  2. PARAPLATIN [Concomitant]
     Active Substance: CARBOPLATIN
  3. METFORMIN [Concomitant]
     Active Substance: METFORMIN HYDROCHLORIDE
  4. GLYBURIDE. [Concomitant]
     Active Substance: GLYBURIDE
  5. TAXOTERE [Suspect]
     Active Substance: DOCETAXEL
     Indication: ENDOMETRIAL ADENOCARCINOMA
     Route: 051
     Dates: start: 20140521, end: 20140521

REACTIONS (2)
  - Alopecia [Not Recovered/Not Resolved]
  - Psychological trauma [Unknown]

NARRATIVE: CASE EVENT DATE: 201411
